FAERS Safety Report 20845396 (Version 1)
Quarter: 2022Q2

REPORT INFORMATION
  Report Type: Spontaneous
  Country: US (occurrence: None)
  Receive Date: 20220518
  Receipt Date: 20220518
  Transmission Date: 20220721
  Serious: Yes (Death)
  Sender: FDA-Public Use
  Company Number: None

PATIENT
  Age: 75 Year
  Sex: Male

DRUGS (1)
  1. PEGASYS [Suspect]
     Active Substance: PEGINTERFERON ALFA-2A
     Dosage: OTHER STRENGTH : 180MCG/0.5ML;?FREQUENCY : WEEKLY;?
     Route: 058
     Dates: start: 20220127

REACTIONS (1)
  - Death [None]

NARRATIVE: CASE EVENT DATE: 20220426
